FAERS Safety Report 6819463-7 (Version None)
Quarter: 2010Q3

REPORT INFORMATION
  Report Type: 
  Country: None (occurrence: None)
  Receive Date: 20100707
  Receipt Date: 20081219
  Transmission Date: 20110219
  Serious: No
  Sender: FDA-Public Use
  Company Number: US-PFIZER INC-2008158159

PATIENT
  Sex: Female

DRUGS (2)
  1. ZYVOX [Suspect]
  2. PROZAC [Concomitant]

REACTIONS (8)
  - ANXIETY [None]
  - ASTHENIA [None]
  - BRUXISM [None]
  - DEPRESSED MOOD [None]
  - FATIGUE [None]
  - INSOMNIA [None]
  - NAUSEA [None]
  - PYREXIA [None]
